FAERS Safety Report 23809460 (Version 1)
Quarter: 2024Q2

REPORT INFORMATION
  Report Type: Spontaneous
  Country: US (occurrence: US)
  Receive Date: 20240502
  Receipt Date: 20240502
  Transmission Date: 20240716
  Serious: No
  Sender: FDA-Public Use
  Company Number: US-UCBSA-2023018926

PATIENT
  Age: 32 Year
  Sex: Female

DRUGS (5)
  1. CIMZIA [Suspect]
     Active Substance: CERTOLIZUMAB PEGOL
     Indication: Psoriasis
     Dosage: 200 MILLIGRAM, EV 2 WEEKS(QOW)
     Route: 058
     Dates: start: 20230406
  2. SELENIUM [Concomitant]
     Active Substance: SELENIUM
     Indication: Product used for unknown indication
     Dosage: 100 MICROGRAM
  3. ASPIRIN [Concomitant]
     Active Substance: ASPIRIN
     Indication: Product used for unknown indication
     Dosage: 81 MILLIGRAM
  4. PRENATAL COMPLETE [Concomitant]
     Indication: Product used for unknown indication
     Dosage: 14 MG-400 TABLET
  5. PFIZER COVID [Concomitant]
     Indication: Product used for unknown indication
     Dosage: UNK

REACTIONS (3)
  - Pruritus [Unknown]
  - Injection site erythema [Unknown]
  - Maternal exposure during pregnancy [Unknown]

NARRATIVE: CASE EVENT DATE: 20230407
